FAERS Safety Report 7522239-9 (Version None)
Quarter: 2011Q2

REPORT INFORMATION
  Report Type: 
  Country: None (occurrence: None)
  Receive Date: 20110603
  Receipt Date: 20110523
  Transmission Date: 20111010
  Serious: Yes (Other)
  Sender: FDA-Public Use
  Company Number: US-CELGENEUS-163-21880-11043358

PATIENT
  Sex: Male
  Weight: 83.99 kg

DRUGS (26)
  1. ALPHA LIPOIC ACID [Concomitant]
     Route: 065
  2. AMBIEN [Concomitant]
     Route: 065
  3. SINGULAIR [Concomitant]
     Route: 065
  4. FISH OIL [Concomitant]
     Route: 065
  5. ZOMETA [Concomitant]
     Route: 065
  6. GLUCOSAMINE [Concomitant]
     Route: 065
  7. LEVITRA [Concomitant]
     Route: 065
  8. REVLIMID [Suspect]
     Indication: MULTIPLE MYELOMA
     Dosage: 15 MILLIGRAM
     Route: 048
     Dates: start: 20091001
  9. ASMANEX TWISTHALER [Concomitant]
     Route: 065
  10. ECHINACEA [Concomitant]
     Route: 065
  11. GRAPE SEED [Concomitant]
     Route: 065
  12. MAGNESIUM SULFATE [Concomitant]
     Route: 065
  13. VITAMIN E [Concomitant]
     Route: 065
  14. COQ10 [Concomitant]
     Route: 065
  15. L-CARNITINE [Concomitant]
     Route: 065
  16. PREDNISONE [Concomitant]
     Route: 065
  17. MULTI-VITAMINS [Concomitant]
     Route: 065
  18. PRIMROSE OIL [Concomitant]
     Route: 065
  19. ASCORBIC ACID [Concomitant]
     Route: 065
  20. VITAMIN D [Concomitant]
     Route: 065
  21. TRIMETHOPRIM + SULFAMETHOXAZOLE [Concomitant]
     Route: 065
  22. ASPIRIN [Concomitant]
     Route: 065
  23. MILK THISTLE [Concomitant]
     Route: 065
  24. LISINOPRIL [Concomitant]
     Route: 065
  25. VITAMIN B COMPLEX CAP [Concomitant]
     Route: 065
  26. ZINC [Concomitant]
     Route: 065

REACTIONS (2)
  - ASTHMA [None]
  - LUNG INFECTION [None]
